FAERS Safety Report 5828569-0 (Version None)
Quarter: 2008Q3

REPORT INFORMATION
  Report Type: 
  Country: None (occurrence: None)
  Receive Date: 20080731
  Receipt Date: 20080721
  Transmission Date: 20090109
  Serious: Yes (Other)
  Sender: FDA-Public Use
  Company Number: CN-ASTRAZENECA-2008AP05614

PATIENT
  Age: 33 Year
  Sex: Female

DRUGS (2)
  1. ROPIVACAINE MESYLATE [Suspect]
     Indication: ANAESTHESIA
     Route: 008
  2. LIDOCAINE [Concomitant]
     Indication: ANAESTHESIA

REACTIONS (5)
  - ANXIETY [None]
  - DIZZINESS [None]
  - DRUG TOXICITY [None]
  - DYSPNOEA [None]
  - PALPITATIONS [None]
